FAERS Safety Report 7344988-8 (Version None)
Quarter: 2011Q1

REPORT INFORMATION
  Report Type: 
  Country: None (occurrence: None)
  Receive Date: 20110302
  Receipt Date: 20110216
  Transmission Date: 20110831
  Serious: Yes (Hospitalization)
  Sender: FDA-Public Use
  Company Number: EU-2011-10023

PATIENT
  Age: 69 Year
  Sex: Male

DRUGS (6)
  1. PENTOXIFYLLINE [Suspect]
     Indication: INTERMITTENT CLAUDICATION
     Dosage: 400 MG MILLIGRAM(S), QD, ORAL
     Route: 048
  2. PLETAL [Suspect]
     Indication: INTERMITTENT CLAUDICATION
     Dosage: 100 MG MILLIGRAM(S), QD, ORAL
     Route: 048
     Dates: start: 20101026, end: 20101108
  3. OMEPRAZOLE [Concomitant]
  4. TROMALYT (ACETYLSALICYLIC ACID) PROLONGED-RELEASE CAPSULE [Suspect]
     Dosage: 150 MG MILLIGRAM(S), QD, ORAL
     Route: 048
  5. UNIKET (ISOSORBIDE MONONITRATE) [Concomitant]
  6. PROCORALAN (IVABRADINE HYDROCHLORIDE) [Concomitant]

REACTIONS (4)
  - GASTROINTESTINAL HAEMORRHAGE [None]
  - DRUG INTERACTION [None]
  - RENAL FAILURE ACUTE [None]
  - HAEMOGLOBIN DECREASED [None]
